FAERS Safety Report 8264205-4 (Version None)
Quarter: 2012Q2

REPORT INFORMATION
  Report Type: 
  Country: None (occurrence: None)
  Receive Date: 20120406
  Receipt Date: 20120329
  Transmission Date: 20120825
  Serious: No
  Sender: FDA-Public Use
  Company Number: US-JNJFOC-20120211460

PATIENT
  Sex: Female
  Weight: 58.97 kg

DRUGS (5)
  1. DURAGESIC-100 [Suspect]
     Indication: INTUSSUSCEPTION
     Route: 062
     Dates: start: 20120101
  2. DURAGESIC-100 [Suspect]
     Route: 062
     Dates: start: 20120101
  3. DURAGESIC-100 [Suspect]
     Route: 062
     Dates: start: 20120101
  4. FENTANYL-100 [Suspect]
     Indication: PRODUCT USED FOR UNKNOWN INDICATION
     Route: 062
  5. DURAGESIC-100 [Suspect]
     Indication: PRODUCT USED FOR UNKNOWN INDICATION
     Route: 062
     Dates: start: 20120201

REACTIONS (4)
  - WRONG TECHNIQUE IN DRUG USAGE PROCESS [None]
  - DRUG PRESCRIBING ERROR [None]
  - HYPERHIDROSIS [None]
  - PRODUCT QUALITY ISSUE [None]
